FAERS Safety Report 10178470 (Version 1)
Quarter: 2014Q2

REPORT INFORMATION
  Report Type: Spontaneous
  Country: GB (occurrence: None)
  Receive Date: 20140515
  Receipt Date: 20140515
  Transmission Date: 20141212
  Serious: Yes (Other)
  Sender: FDA-Public Use
  Company Number: AUR-APL-2014-05523

PATIENT
  Age: 67 Year
  Sex: Female
  Weight: 97.5 kg

DRUGS (3)
  1. BISOPROLOL (BISOPROLOL) [Suspect]
     Indication: LEFT VENTRICULAR FAILURE
     Dosage: 5MG (5 MG, IN 1 IN 1 D), ORAL
     Route: 048
     Dates: start: 20140418, end: 20140421
  2. FUROSEMIDE (FUROSEMIDE) [Concomitant]
  3. RAMIPRUIL (RAMIPRIL) [Concomitant]

REACTIONS (1)
  - Swelling face [None]
